FAERS Safety Report 5843295-X (Version None)
Quarter: 2008Q3

REPORT INFORMATION
  Report Type: 
  Country: None (occurrence: None)
  Receive Date: 20080813
  Receipt Date: 20080806
  Transmission Date: 20090109
  Serious: Yes (Hospitalization)
  Sender: FDA-Public Use
  Company Number: US-BAYER-200812387BCC

PATIENT
  Age: 66 Year
  Sex: Female
  Weight: 112 kg

DRUGS (10)
  1. ASPIRIN [Suspect]
     Indication: PAIN IN EXTREMITY
     Dosage: UNIT DOSE: 325 MG
     Route: 048
     Dates: start: 20080120, end: 20080123
  2. VITAMIN E [Concomitant]
  3. HIGH BLOOD PRESSURE MEDICATION [Concomitant]
  4. NORVASC [Concomitant]
     Dates: start: 19970101
  5. OMEPRAZOLE [Concomitant]
     Dates: start: 20080101
  6. FOLIC ACID [Concomitant]
     Dates: start: 20080101
  7. IRON [Concomitant]
     Dates: start: 20080101
  8. DARVOCET [Concomitant]
     Dates: start: 20080101
  9. NORVASC [Concomitant]
  10. ASPIR-TRIN [Concomitant]
     Route: 048
     Dates: start: 20061101

REACTIONS (7)
  - FAECAL INCONTINENCE [None]
  - FEELING ABNORMAL [None]
  - HALLUCINATION [None]
  - THERAPEUTIC AGENT TOXICITY [None]
  - URINARY INCONTINENCE [None]
  - URINARY TRACT INFECTION [None]
  - URINARY TRACT INFECTION FUNGAL [None]
